FAERS Safety Report 20492367 (Version 1)
Quarter: 2022Q1

REPORT INFORMATION
  Report Type: Spontaneous
  Country: CN (occurrence: CN)
  Receive Date: 20220218
  Receipt Date: 20220218
  Transmission Date: 20220423
  Serious: Yes (Other)
  Sender: FDA-Public Use
  Company Number: CN-SA-SAC20220214001476

PATIENT
  Age: 45 Year
  Sex: Female
  Weight: 67.5 kg

DRUGS (2)
  1. DOCETAXEL [Suspect]
     Active Substance: DOCETAXEL
     Indication: Breast cancer
     Dosage: 140 MG, QD
     Route: 041
     Dates: start: 20211129, end: 20211129
  2. DEXTROSE [Concomitant]
     Active Substance: DEXTROSE
     Dosage: 250ML, QD
     Route: 041
     Dates: start: 20211129, end: 20211129

REACTIONS (2)
  - White blood cell count decreased [Recovering/Resolving]
  - Neutrophil count decreased [Recovering/Resolving]

NARRATIVE: CASE EVENT DATE: 20220201
